FAERS Safety Report 16406880 (Version 2)
Quarter: 2019Q3

REPORT INFORMATION
  Report Type: Spontaneous
  Country: PT (occurrence: PT)
  Receive Date: 20190607
  Receipt Date: 20190717
  Transmission Date: 20191004
  Serious: Yes (Death, Hospitalization)
  Sender: FDA-Public Use
  Company Number: PT-NOVOPROD-665513

PATIENT
  Age: 88 Year
  Sex: Female
  Weight: 90 kg

DRUGS (1)
  1. TRESIBA [Suspect]
     Active Substance: INSULIN DEGLUDEC
     Indication: TYPE 2 DIABETES MELLITUS
     Dosage: UNK
     Route: 065
     Dates: start: 20190509

REACTIONS (1)
  - Sepsis [Fatal]
